FAERS Safety Report 4574501-X (Version None)
Quarter: 2005Q1

REPORT INFORMATION
  Report Type: 
  Country: None (occurrence: None)
  Receive Date: 20050208
  Receipt Date: 20020916
  Transmission Date: 20050727
  Serious: No
  Sender: FDA-Public Use
  Company Number: US-GLAXOSMITHKLINE-A0381015A

PATIENT
  Age: 35 Year
  Sex: Female

DRUGS (1)
  1. PAXIL [Suspect]
     Indication: POSTPARTUM DEPRESSION
     Route: 048
     Dates: end: 20020901

REACTIONS (11)
  - ABNORMAL DREAMS [None]
  - AFFECT LABILITY [None]
  - DRUG INEFFECTIVE [None]
  - IRRITABILITY [None]
  - MEMORY IMPAIRMENT [None]
  - MENTAL DISORDER [None]
  - NIGHT SWEATS [None]
  - PALPITATIONS [None]
  - TINNITUS [None]
  - TREMOR [None]
  - VERTIGO [None]
